FAERS Safety Report 8830102 (Version 2)
Quarter: 2012Q4

REPORT INFORMATION
  Report Type: 
  Country: JP (occurrence: JP)
  Receive Date: 20121008
  Receipt Date: 20121019
  Transmission Date: 20130627
  Serious: Yes (Death)
  Sender: FDA-Public Use
  Company Number: JP-B.I. PHARMACEUTICALS,INC./RIDGEFIELD-2012-BP-24597NB

PATIENT
  Age: 75 Year
  Sex: Female
  Weight: 45 kg

DRUGS (5)
  1. PRAZAXA [Suspect]
     Indication: ATRIAL FIBRILLATION
     Dosage: 220 mg
     Route: 048
     Dates: start: 20120209, end: 20120607
  2. BAYASPIRIN [Concomitant]
     Indication: CEREBRAL INFARCTION
     Dosage: 100 mg
     Route: 048
     Dates: start: 20110410, end: 20120607
  3. LIPITOR [Concomitant]
     Indication: HYPERCHOLESTEROLAEMIA
     Dosage: 10 mg
     Route: 048
     Dates: start: 20041020, end: 20120607
  4. HALFDIGOXIN [Concomitant]
     Indication: CARDIAC FAILURE
     Dosage: 0.125 mg
     Route: 048
     Dates: start: 20041020, end: 20120607
  5. ECARD [Concomitant]
     Indication: HYPERTENSION
     Dosage: 1 RT
     Route: 048
     Dates: start: 20110423, end: 20120607

REACTIONS (1)
  - Sudden death [Fatal]
